FAERS Safety Report 9176650 (Version 1)
Quarter: 2013Q1

REPORT INFORMATION
  Report Type: Spontaneous
  Country: KR (occurrence: None)
  Receive Date: 20130319
  Receipt Date: 20130319
  Transmission Date: 20140127
  Serious: Yes (Life-Threatening)
  Sender: FDA-Public Use
  Company Number: NPIL/SEV/H/2013/52

PATIENT
  Age: 56 Year
  Sex: Female
  Weight: 35 kg

DRUGS (4)
  1. SEVOFLURANE [Suspect]
     Indication: ANAESTHESIA
     Route: 055
  2. THIOPENTAL ANESTHESIA INDUCTION [Concomitant]
  3. REMIIFENTANIL ANESTHESIA INDUCTION [Concomitant]
  4. REMIFENTANIL ANESTHESIA MAINTENANCE [Concomitant]

REACTIONS (2)
  - Torsade de pointes [None]
  - Cardiac arrest [None]
